FAERS Safety Report 12728425 (Version 1)
Quarter: 2016Q3

REPORT INFORMATION
  Report Type: Spontaneous
  Country: US (occurrence: US)
  Receive Date: 20160907
  Receipt Date: 20160907
  Transmission Date: 20161109
  Serious: Yes (Hospitalization, Disabling, Other)
  Sender: FDA-Public Use
  Company Number: None

PATIENT
  Age: 63 Year
  Sex: Male
  Weight: 130 kg

DRUGS (14)
  1. PREXUM [Concomitant]
     Active Substance: PERINDOPRIL ERBUMINE
  2. INDAPAMIDE. [Concomitant]
     Active Substance: INDAPAMIDE
  3. WARFARIN [Concomitant]
     Active Substance: WARFARIN
  4. UNAAT [Concomitant]
  5. PANTOCID [Concomitant]
  6. SANDS BEZAFIBRATE [Concomitant]
  7. GALVUS [Concomitant]
     Active Substance: VILDAGLIPTIN
  8. PURESIS [Concomitant]
     Active Substance: FUROSEMIDE
  9. DETTOL (CHLOROXYLENOL) [Suspect]
     Active Substance: CHLOROXYLENOL
     Indication: ANTIBIOTIC PROPHYLAXIS
     Dosage: OTHER
  10. ATOLIP [Concomitant]
  11. PREDNISONE. [Concomitant]
     Active Substance: PREDNISONE
  12. CITALOPRAM [Concomitant]
     Active Substance: CITALOPRAM HYDROBROMIDE
  13. SLOW K [Concomitant]
     Active Substance: POTASSIUM CHLORIDE
  14. COVERAM [Concomitant]
     Active Substance: AMLODIPINE\PERINDOPRIL

REACTIONS (1)
  - Nephropathy [None]

NARRATIVE: CASE EVENT DATE: 20160613
